FAERS Safety Report 18020392 (Version 2)
Quarter: 2020Q3

REPORT INFORMATION
  Report Type: Spontaneous
  Country: IE (occurrence: IE)
  Receive Date: 20200714
  Receipt Date: 20200717
  Transmission Date: 20201103
  Serious: Yes (Hospitalization, Other)
  Sender: FDA-Public Use
  Company Number: IE-MYLANLABS-2020M1059461

PATIENT
  Age: 33 Year
  Sex: Male

DRUGS (3)
  1. CLOZARIL [Suspect]
     Active Substance: CLOZAPINE
     Indication: SCHIZOAFFECTIVE DISORDER
     Dosage: 5 MG MANE AND 300 MG NOCTE
     Route: 048
     Dates: start: 2012, end: 20200701
  2. CLOZARIL [Suspect]
     Active Substance: CLOZAPINE
     Indication: SCHIZOPHRENIA
     Dosage: UNK
     Route: 048
     Dates: start: 20120327
  3. EPILIM [Concomitant]
     Active Substance: VALPROATE SODIUM
     Indication: SCHIZOAFFECTIVE DISORDER
     Dosage: 1300 MILLIGRAM, PM
     Route: 048

REACTIONS (8)
  - White blood cell count increased [Recovered/Resolved]
  - Platelet count increased [Recovered/Resolved]
  - Eosinophil count increased [Recovered/Resolved]
  - Haemoglobin decreased [Unknown]
  - Empyema [Unknown]
  - Malaise [Unknown]
  - Atypical pneumonia [Unknown]
  - Monocyte count increased [Unknown]

NARRATIVE: CASE EVENT DATE: 20200623
